FAERS Safety Report 10435210 (Version 2)
Quarter: 2014Q4

REPORT INFORMATION
  Report Type: Spontaneous
  Country: JP (occurrence: JP)
  Receive Date: 20140907
  Receipt Date: 20141113
  Transmission Date: 20150528
  Serious: Yes (Other)
  Sender: FDA-Public Use
  Company Number: PHHY2014JP112724

PATIENT
  Age: 79 Year
  Sex: Male

DRUGS (4)
  1. NEXAVAR [Suspect]
     Active Substance: SORAFENIB
     Indication: RENAL CELL CARCINOMA
     Dosage: 800 MG, UNK
     Route: 048
     Dates: start: 20100927, end: 20101001
  2. SUNITINIB MALATE [Concomitant]
     Active Substance: SUNITINIB MALATE
     Dosage: 25 MG, UNK
     Route: 048
  3. AFINITOR [Suspect]
     Active Substance: EVEROLIMUS
     Indication: RENAL CELL CARCINOMA
     Dosage: 10 MG, UNK
     Route: 048
     Dates: start: 20101006, end: 20101013
  4. SUNITINIB MALATE [Concomitant]
     Active Substance: SUNITINIB MALATE
     Indication: PRODUCT USED FOR UNKNOWN INDICATION
     Dosage: 37.5 MG, UNK
     Route: 048

REACTIONS (8)
  - Cough [Unknown]
  - Platelet count decreased [Recovered/Resolved]
  - Palmar-plantar erythrodysaesthesia syndrome [Unknown]
  - Pyrexia [Unknown]
  - Interstitial lung disease [Recovered/Resolved]
  - Malaise [Unknown]
  - Decreased appetite [Unknown]
  - Stomatitis [Recovered/Resolved]

NARRATIVE: CASE EVENT DATE: 20101012
